FAERS Safety Report 8178927-7 (Version None)
Quarter: 2012Q1

REPORT INFORMATION
  Report Type: 
  Country: None (occurrence: None)
  Receive Date: 20120302
  Receipt Date: 20120222
  Transmission Date: 20120608
  Serious: No
  Sender: FDA-Public Use
  Company Number: US-BIOGENIDEC-2012BI006898

PATIENT
  Age: 44 Year
  Sex: Female

DRUGS (1)
  1. TYSABRI [Suspect]
     Indication: MULTIPLE SCLEROSIS
     Route: 042
     Dates: start: 20120119

REACTIONS (8)
  - MUSCLE SPASMS [None]
  - SLEEP DISORDER [None]
  - FATIGUE [None]
  - ABDOMINAL PAIN UPPER [None]
  - POOR VENOUS ACCESS [None]
  - BURSITIS [None]
  - MENTAL DISORDER [None]
  - SOMNOLENCE [None]
